FAERS Safety Report 6490814-9 (Version None)
Quarter: 2009Q4

REPORT INFORMATION
  Report Type: 
  Country: None (occurrence: None)
  Receive Date: 20091211
  Receipt Date: 20091202
  Transmission Date: 20100525
  Serious: Yes (Life-Threatening)
  Sender: FDA-Public Use
  Company Number: JP-NAPPMUNDI-MAG-2009-0001158

PATIENT
  Sex: Male

DRUGS (6)
  1. OXYCODONE HCL [Suspect]
     Indication: CANCER PAIN
     Dosage: 100 MG, DAILY
     Route: 048
     Dates: start: 20090416
  2. OXYCODONE HCL [Suspect]
     Dosage: 10 UNK, UNK
     Route: 048
     Dates: start: 20091104
  3. LOXONIN                            /00890702/ [Concomitant]
     Indication: CANCER PAIN
     Dosage: 180 MG, DAILY
     Route: 048
     Dates: start: 20081021, end: 20091004
  4. TS 1 [Concomitant]
     Indication: LUNG NEOPLASM MALIGNANT
     Dosage: 120 MG, DAILY
     Route: 048
     Dates: start: 20090925, end: 20091016
  5. TS 1 [Concomitant]
     Indication: METASTASES TO BONE
  6. RINDERON                           /00008501/ [Concomitant]
     Indication: PARAPLEGIA
     Dosage: 2 MG, DAILY
     Route: 048
     Dates: start: 20090911

REACTIONS (1)
  - RECTAL ULCER HAEMORRHAGE [None]
